FAERS Safety Report 10971882 (Version 1)
Quarter: 2015Q1

REPORT INFORMATION
  Report Type: Report from Study
  Country: TR (occurrence: TR)
  Receive Date: 20150331
  Receipt Date: 20150331
  Transmission Date: 20150721
  Serious: Yes (Other)
  Sender: FDA-Public Use
  Company Number: PHHY2014TR152856

PATIENT
  Age: 12 Year
  Sex: Male
  Weight: 31 kg

DRUGS (1)
  1. EXJADE [Suspect]
     Active Substance: DEFERASIROX
     Indication: THALASSAEMIA BETA
     Dosage: 750 MG, DAILY
     Route: 048
     Dates: start: 2009

REACTIONS (6)
  - Diarrhoea haemorrhagic [Recovered/Resolved]
  - Abdominal pain upper [Recovered/Resolved]
  - Oesophageal motility disorder [Recovered/Resolved]
  - Deafness [Not Recovered/Not Resolved]
  - Ear infection [Not Recovered/Not Resolved]
  - Haemoglobin decreased [Recovered/Resolved]

NARRATIVE: CASE EVENT DATE: 20141116
